FAERS Safety Report 12658699 (Version 1)
Quarter: 2016Q3

REPORT INFORMATION
  Report Type: Spontaneous
  Country: US (occurrence: US)
  Receive Date: 20160817
  Receipt Date: 20160817
  Transmission Date: 20161109
  Serious: No
  Sender: FDA-Public Use
  Company Number: US-ASTRAZENECA-2016SE78268

PATIENT
  Age: 72 Year
  Sex: Male

DRUGS (2)
  1. OXYCONTIN [Interacting]
     Active Substance: OXYCODONE HYDROCHLORIDE
     Route: 065
  2. MOVANTIK [Suspect]
     Active Substance: NALOXEGOL OXALATE
     Indication: CONSTIPATION
     Route: 048

REACTIONS (4)
  - Panic attack [Unknown]
  - Drug interaction [Unknown]
  - Pain [Unknown]
  - Drug withdrawal syndrome [Unknown]
